FAERS Safety Report 9172033 (Version 1)
Quarter: 2013Q1

REPORT INFORMATION
  Report Type: Spontaneous
  Country: US (occurrence: US)
  Receive Date: 20130319
  Receipt Date: 20130319
  Transmission Date: 20140127
  Serious: Yes (Other)
  Sender: FDA-Public Use
  Company Number: US-BRISTOL-MYERS SQUIBB COMPANY-17469958

PATIENT
  Age: 68 Year
  Sex: Female

DRUGS (1)
  1. AVAPRO TABS 300 MG [Suspect]

REACTIONS (2)
  - Cervical spinal stenosis [Unknown]
  - Dysphagia [None]
